FAERS Safety Report 6401010-5 (Version None)
Quarter: 2009Q4

REPORT INFORMATION
  Report Type: 
  Country: None (occurrence: None)
  Receive Date: 20091013
  Receipt Date: 20091013
  Transmission Date: 20100525
  Serious: Yes (Death, Life-Threatening, Hospitalization)
  Sender: FDA-Public Use
  Company Number: None

PATIENT
  Age: 63 Year
  Sex: Male
  Weight: 64.8 kg

DRUGS (18)
  1. RAD001/ EVEROLIMUS 10 MG - ONCE DAILY NOVARTIS [Suspect]
     Indication: METASTATIC GASTRIC CANCER
     Dosage: RAD001 - 10 MG ONCE DAILY PO
     Route: 048
     Dates: start: 20090824, end: 20090930
  2. RAD001/ EVEROLIMUS 10 MG - ONCE DAILY NOVARTIS [Suspect]
     Indication: NEUROENDOCRINE TUMOUR
     Dosage: RAD001 - 10 MG ONCE DAILY PO
     Route: 048
     Dates: start: 20090824, end: 20090930
  3. SORAFENIB 200 MG - TWICE DAILY BAYER-ONYX [Suspect]
     Indication: NEUROENDOCRINE TUMOUR
     Dosage: SORAFENIB- 200 MG TWICE DAILY PO
     Route: 048
     Dates: start: 20090824, end: 20090930
  4. AMBIEN [Concomitant]
  5. ATIVAN [Concomitant]
  6. BISOPROLOL FUMURATE [Concomitant]
  7. CLARITIN [Concomitant]
  8. COMPAZINE [Concomitant]
  9. DARBEPOETIN ALFA [Concomitant]
  10. DILAUDID [Concomitant]
  11. FENTANYL TRANSDERMAL SYSTEM [Concomitant]
  12. NEUTRAPHOS [Concomitant]
  13. ONDANSETRON [Concomitant]
  14. POTASSIUM CHLORIDE [Concomitant]
  15. QUINAPRIL [Concomitant]
  16. REMERON [Concomitant]
  17. SENNA [Concomitant]
  18. HYDROCHLORITHIAZIDE [Concomitant]

REACTIONS (1)
  - GASTRIC PERFORATION [None]
